FAERS Safety Report 4729907-2 (Version None)
Quarter: 2005Q3

REPORT INFORMATION
  Report Type: 
  Country: None (occurrence: None)
  Receive Date: 20050728
  Receipt Date: 20050728
  Transmission Date: 20060218
  Serious: Yes (Life-Threatening, Hospitalization)
  Sender: FDA-Public Use
  Company Number: None

PATIENT
  Age: 38 Year
  Sex: Female

DRUGS (2)
  1. YASMIN [Suspect]
     Indication: UTERINE LEIOMYOMA
     Dosage: DAILY
     Dates: start: 20050415, end: 20050525
  2. YASMIN [Suspect]
     Indication: UTERINE POLYP
     Dosage: DAILY
     Dates: start: 20050415, end: 20050525

REACTIONS (1)
  - PULMONARY EMBOLISM [None]
